FAERS Safety Report 23075283 (Version 2)
Quarter: 2023Q4

REPORT INFORMATION
  Report Type: Spontaneous
  Country: US (occurrence: US)
  Receive Date: 20231017
  Receipt Date: 20231115
  Transmission Date: 20240110
  Serious: No
  Sender: FDA-Public Use
  Company Number: US-SA-SAC20231011000638

PATIENT
  Age: 70 Year
  Sex: Male
  Weight: 74.8 kg

DRUGS (18)
  1. DUPIXENT [Suspect]
     Active Substance: DUPILUMAB
     Indication: Asthma
     Dosage: 300 MG, QOW
     Route: 058
     Dates: end: 20231020
  2. ALBUTEROL SULFATE [Concomitant]
     Active Substance: ALBUTEROL SULFATE
  3. MONTELUKAST SODIUM [Concomitant]
     Active Substance: MONTELUKAST SODIUM
  4. PREDNISONE [Concomitant]
     Active Substance: PREDNISONE
  5. OMEPRAZOLE [Concomitant]
     Active Substance: OMEPRAZOLE
  6. IRON [Concomitant]
     Active Substance: IRON
  7. ESCITALOPRAM OXALATE [Concomitant]
     Active Substance: ESCITALOPRAM OXALATE
  8. FUROSEMIDE [Concomitant]
     Active Substance: FUROSEMIDE
  9. PENTOXIFYLLINE [Concomitant]
     Active Substance: PENTOXIFYLLINE
  10. LOMOTIL [Concomitant]
     Active Substance: ATROPINE SULFATE\DIPHENOXYLATE HYDROCHLORIDE
  11. LOPERAMIDE [Concomitant]
     Active Substance: LOPERAMIDE
  12. LOSARTAN POTASSIUM [Concomitant]
     Active Substance: LOSARTAN POTASSIUM
  13. ELIQUIS [Concomitant]
     Active Substance: APIXABAN
  14. AZITHROMYCIN [Concomitant]
     Active Substance: AZITHROMYCIN
  15. LEVOCETIRIZINE DIHYDROCHLORIDE [Concomitant]
     Active Substance: LEVOCETIRIZINE DIHYDROCHLORIDE
  16. SULFASALAZINE [Concomitant]
     Active Substance: SULFASALAZINE
  17. VITAMINS NOS [Concomitant]
     Active Substance: VITAMINS
  18. LOPERAMIDE HYDROCHLORIDE [Concomitant]
     Active Substance: LOPERAMIDE HYDROCHLORIDE

REACTIONS (1)
  - Hernia [Unknown]

NARRATIVE: CASE EVENT DATE: 20231016
